FAERS Safety Report 8463884-6 (Version None)
Quarter: 2012Q2

REPORT INFORMATION
  Report Type: 
  Country: None (occurrence: None)
  Receive Date: 20120625
  Receipt Date: 20120621
  Transmission Date: 20120825
  Serious: Yes (Other)
  Sender: FDA-Public Use
  Company Number: US-PFIZER INC-2012041919

PATIENT
  Sex: Female
  Weight: 59 kg

DRUGS (2)
  1. CHANTIX [Suspect]
     Dosage: UNK; TWICE A DAY
     Route: 048
     Dates: start: 20120101, end: 20120215
  2. CHANTIX [Suspect]
     Indication: SMOKING CESSATION THERAPY
     Dosage: 0.5 MG, 1X/DAY
     Route: 048
     Dates: start: 20120201, end: 20120101

REACTIONS (4)
  - TOBACCO USER [None]
  - PANIC ATTACK [None]
  - DYSPNOEA [None]
  - NERVOUSNESS [None]
